FAERS Safety Report 9026629 (Version 1)
Quarter: 2013Q1

REPORT INFORMATION
  Report Type: Spontaneous
  Country: GB (occurrence: None)
  Receive Date: 20130107
  Receipt Date: 20130107
  Transmission Date: 20140127
  Serious: Yes (Other)
  Sender: FDA-Public Use
  Company Number: GER/UKI/12/0027249

PATIENT
  Age: 46 Year
  Sex: Female
  Weight: 82.55 kg

DRUGS (1)
  1. AMLODIPINE (AMLODIPINE) [Suspect]
     Indication: HYPERTENSION
     Route: 048
     Dates: start: 201204

REACTIONS (9)
  - Confusional state [None]
  - Depressed mood [None]
  - Dissociation [None]
  - Fatigue [None]
  - Memory impairment [None]
  - Disturbance in attention [None]
  - Lethargy [None]
  - Feeling abnormal [None]
  - Fear [None]
